FAERS Safety Report 20364316 (Version 1)
Quarter: 2022Q1

REPORT INFORMATION
  Report Type: Spontaneous
  Country: US (occurrence: None)
  Receive Date: 20220121
  Receipt Date: 20220121
  Transmission Date: 20220423
  Serious: Yes (Hospitalization)
  Sender: FDA-Public Use
  Company Number: None

PATIENT
  Age: 74 Year
  Sex: Male
  Weight: 89.36 kg

DRUGS (1)
  1. SPIRONOLACTONE [Suspect]
     Active Substance: SPIRONOLACTONE
     Indication: Ascites
     Dosage: FREQUENCY : DAILY;?
     Route: 048
     Dates: start: 20201009, end: 20201215

REACTIONS (2)
  - Hyperkalaemia [None]
  - Renal impairment [None]

NARRATIVE: CASE EVENT DATE: 20201215
